FAERS Safety Report 5358171-9 (Version None)
Quarter: 2007Q2

REPORT INFORMATION
  Report Type: 
  Country: None (occurrence: None)
  Receive Date: 20070530
  Receipt Date: 20061017
  Transmission Date: 20071010
  Serious: Yes (Hospitalization)
  Sender: FDA-Public Use
  Company Number: US200605003264

PATIENT
  Age: 43 Year
  Sex: Female
  Weight: 127 kg

DRUGS (5)
  1. ZYPREXA [Suspect]
     Indication: DEPRESSION
     Dosage: 10 MG
     Dates: start: 20010101, end: 20040101
  2. QUETIAPINE FUMARATE [Concomitant]
  3. LITHIUM CARBONATE [Concomitant]
  4. AMARYL /SWE/ (GLIMEPIRIDE) [Concomitant]
  5. AVANDIA (RISIGLITAZONE MALEATE) [Concomitant]

REACTIONS (6)
  - BLOOD CHOLESTEROL [None]
  - CARDIAC FAILURE CONGESTIVE [None]
  - COMA [None]
  - DIABETES MELLITUS [None]
  - HYPERTENSION [None]
  - METABOLIC DISORDER [None]
